FAERS Safety Report 16280459 (Version 1)
Quarter: 2019Q2

REPORT INFORMATION
  Report Type: Report from Study
  Country: None (occurrence: NL)
  Receive Date: 20190507
  Receipt Date: 20190507
  Transmission Date: 20190711
  Serious: Yes (Hospitalization)
  Sender: FDA-Public Use
  Company Number: NL-ABBVIE-19S-114-2633660-00

PATIENT
  Age: 3 Month
  Sex: Female
  Weight: 5.25 kg

DRUGS (9)
  1. SYNAGIS [Suspect]
     Active Substance: PALIVIZUMAB
     Indication: ANTIVIRAL PROPHYLAXIS
     Route: 050
     Dates: start: 20181127, end: 20181127
  2. SYNAGIS [Suspect]
     Active Substance: PALIVIZUMAB
     Route: 050
     Dates: start: 20190126, end: 20190126
  3. SYNAGIS [Suspect]
     Active Substance: PALIVIZUMAB
     Route: 050
     Dates: start: 20190418
  4. SYNAGIS [Suspect]
     Active Substance: PALIVIZUMAB
     Route: 050
     Dates: start: 20190222, end: 20190222
  5. SALBUTAMOL [Concomitant]
     Active Substance: ALBUTEROL
     Indication: PRODUCT USED FOR UNKNOWN INDICATION
  6. FORLAX [Concomitant]
     Active Substance: POLYETHYLENE GLYCOL 4000
     Indication: PRODUCT USED FOR UNKNOWN INDICATION
     Dosage: PUFFS
  7. SYNAGIS [Suspect]
     Active Substance: PALIVIZUMAB
     Route: 050
     Dates: start: 20181224, end: 20181224
  8. VITAMIN D NOS [Concomitant]
     Active Substance: VITAMIN D NOS
     Indication: PRODUCT USED FOR UNKNOWN INDICATION
  9. SYNAGIS [Suspect]
     Active Substance: PALIVIZUMAB
     Route: 050
     Dates: start: 20190322, end: 20190322

REACTIONS (1)
  - Respiratory syncytial virus infection [Recovered/Resolved]

NARRATIVE: CASE EVENT DATE: 20190110
